FAERS Safety Report 15963927 (Version 2)
Quarter: 2019Q1

REPORT INFORMATION
  Report Type: Spontaneous
  Country: US (occurrence: US)
  Receive Date: 20190214
  Receipt Date: 20190214
  Transmission Date: 20190417
  Serious: No
  Sender: FDA-Public Use
  Company Number: US-DUSA PHARMACEUTICALS, INC.-2062705

PATIENT
  Age: 74 Year
  Sex: Female

DRUGS (2)
  1. LEVULAN KERASTICK [Suspect]
     Active Substance: AMINOLEVULINIC ACID HYDROCHLORIDE
     Indication: PRODUCT USED FOR UNKNOWN INDICATION
     Route: 061
  2. BLU-U LIGHT (BLU-U BLUE LIGHT PHOTODYNAMIC THERAPY ILLUMINATOR) [Suspect]
     Active Substance: DEVICE

REACTIONS (15)
  - Muscular weakness [Recovering/Resolving]
  - Ill-defined disorder [Recovering/Resolving]
  - Renal disorder [Recovering/Resolving]
  - Nonspecific reaction [Unknown]
  - Rash [Unknown]
  - Malaise [Not Recovered/Not Resolved]
  - Dizziness [Recovering/Resolving]
  - Swelling face [Unknown]
  - Scar [Unknown]
  - Asthenia [Recovering/Resolving]
  - Hypoacusis [Unknown]
  - Acne [Unknown]
  - Viral infection [Unknown]
  - Erythema [Unknown]
  - Vision blurred [Unknown]
